FAERS Safety Report 5449605-X (Version None)
Quarter: 2007Q3

REPORT INFORMATION
  Report Type: 
  Country: None (occurrence: None)
  Receive Date: 20070912
  Receipt Date: 20070831
  Transmission Date: 20080115
  Serious: Yes (Other)
  Sender: FDA-Public Use
  Company Number: PHHO2007BR14470

PATIENT
  Age: 68 Year
  Sex: Female

DRUGS (1)
  1. DIOVAN AMLO [Suspect]
     Dosage: 160/5 MG/DAILY
     Route: 048

REACTIONS (2)
  - BLOOD PRESSURE ABNORMAL [None]
  - OEDEMA PERIPHERAL [None]
